FAERS Safety Report 7822736-2 (Version None)
Quarter: 2011Q4

REPORT INFORMATION
  Report Type: 
  Country: None (occurrence: None)
  Receive Date: 20111018
  Receipt Date: 20110923
  Transmission Date: 20120403
  Serious: Yes (Other)
  Sender: FDA-Public Use
  Company Number: DE-ROCHE-1001348

PATIENT
  Age: 30 Year
  Sex: Male

DRUGS (1)
  1. XOLAIR [Suspect]
     Indication: ASTHMA
     Dates: start: 20110701

REACTIONS (5)
  - SERUM SICKNESS [None]
  - PYREXIA [None]
  - SHIFT TO THE LEFT [None]
  - LEUKOCYTOSIS [None]
  - NAUSEA [None]
